FAERS Safety Report 10085277 (Version 2)
Quarter: 2014Q2

REPORT INFORMATION
  Report Type: Spontaneous
  Country: US (occurrence: US)
  Receive Date: 20140417
  Receipt Date: 20140528
  Transmission Date: 20141212
  Serious: Yes (Hospitalization, Other)
  Sender: FDA-Public Use
  Company Number: US-RB-066218-14

PATIENT
  Age: 28 Year
  Sex: Female

DRUGS (8)
  1. SUBOXONE FILM [Suspect]
     Indication: DRUG DEPENDENCE
     Dosage: SUBOXONE FILM
     Route: 060
     Dates: start: 2012, end: 2013
  2. SUBOXONE FILM [Suspect]
     Dosage: SUBOXONE FILM; TAKING 1.5 OF A STRIP DAILY
     Route: 060
     Dates: start: 2013, end: 201402
  3. SUBOXONE FILM [Suspect]
     Dosage: SUBOXONE FILM
     Route: 060
     Dates: start: 201403
  4. ABILIFY [Suspect]
     Route: 048
     Dates: end: 201402
  5. ABILIFY [Suspect]
     Indication: DEPRESSION
     Dosage: OVERDOSED (DOSE NOT SPECIFIED)
     Route: 065
     Dates: start: 201403, end: 201403
  6. PROZAC [Suspect]
     Indication: DEPRESSION
     Route: 048
     Dates: start: 2008, end: 201402
  7. XANAX [Concomitant]
     Indication: PRODUCT USED FOR UNKNOWN INDICATION
     Route: 048
     Dates: start: 2008
  8. CONCERTA [Concomitant]
     Indication: PRODUCT USED FOR UNKNOWN INDICATION
     Dosage: UNKNOWN DAILY DOSING
     Route: 048
     Dates: end: 201403

REACTIONS (5)
  - Wrong technique in drug usage process [Recovered/Resolved]
  - Depression [Recovered/Resolved]
  - Suicidal ideation [Recovered/Resolved]
  - Suicide attempt [Recovered/Resolved]
  - Overdose [Recovered/Resolved]
